FAERS Safety Report 5466966-6 (Version None)
Quarter: 2007Q3

REPORT INFORMATION
  Report Type: 
  Country: None (occurrence: None)
  Receive Date: 20070921
  Receipt Date: 20070921
  Transmission Date: 20080115
  Serious: No
  Sender: FDA-Public Use
  Company Number: None

PATIENT
  Age: 69 Year
  Sex: Male

DRUGS (5)
  1. FLECAINIDE ACETATE [Suspect]
     Indication: CARDIAC ABLATION
     Dosage: TAKE 1 TAB BY MOUTH EVERY 12 HOURS
     Route: 048
     Dates: start: 20070706
  2. VYTORIN [Concomitant]
  3. WARFARIN [Concomitant]
  4. ASTELIN [Concomitant]
  5. ASACOL [Concomitant]

REACTIONS (3)
  - DYSGEUSIA [None]
  - PHARMACEUTICAL PRODUCT COMPLAINT [None]
  - POOR QUALITY DRUG ADMINISTERED [None]
